FAERS Safety Report 25937788 (Version 1)
Quarter: 2025Q4

REPORT INFORMATION
  Report Type: Report from Study
  Country: US (occurrence: US)
  Receive Date: 20251018
  Receipt Date: 20251018
  Transmission Date: 20260118
  Serious: Yes (Other)
  Sender: ABBVIE
  Company Number: US-ABBVIE-6502957

PATIENT
  Age: 81 Year
  Sex: Female

DRUGS (5)
  1. SKYRIZI [Suspect]
     Active Substance: RISANKIZUMAB-RZAA
     Indication: Crohn^s disease
     Dosage: TIME INTERVAL: TOTAL: STRENGTH-180MG/1.2M, WEEK 12
     Route: 058
     Dates: start: 20250716, end: 20250716
  2. SKYRIZI [Suspect]
     Active Substance: RISANKIZUMAB-RZAA
     Dosage: STRENGTH-180MG/1.2M, THEN EVERY 56 DAYS THEREAFTER
     Route: 058
     Dates: start: 20250912
  3. SKYRIZI [Suspect]
     Active Substance: RISANKIZUMAB-RZAA
     Indication: Crohn^s disease
     Dosage: TIME INTERVAL: TOTAL: STRENGTH-600MG, WEEK 0
     Route: 042
     Dates: start: 20250416, end: 20250416
  4. SKYRIZI [Suspect]
     Active Substance: RISANKIZUMAB-RZAA
     Indication: Crohn^s disease
     Dosage: TIME INTERVAL: TOTAL: STRENGTH-600MG, WEEK 4
     Route: 042
     Dates: start: 20250521, end: 20250521
  5. SKYRIZI [Suspect]
     Active Substance: RISANKIZUMAB-RZAA
     Indication: Crohn^s disease
     Dosage: TIME INTERVAL: TOTAL: STRENGTH-600MG, WEEK 8
     Route: 042
     Dates: start: 20250620, end: 20250620

REACTIONS (7)
  - Haemorrhoids [Unknown]
  - Rectal haemorrhage [Unknown]
  - Cystitis [Unknown]
  - Flatulence [Not Recovered/Not Resolved]
  - Fatigue [Not Recovered/Not Resolved]
  - Asthenia [Not Recovered/Not Resolved]
  - Carcinoid syndrome [Unknown]

NARRATIVE: CASE EVENT DATE: 20250101
